FAERS Safety Report 5892534-8 (Version None)
Quarter: 2008Q3

REPORT INFORMATION
  Report Type: 
  Country: None (occurrence: None)
  Receive Date: 20080915
  Receipt Date: 20080915
  Transmission Date: 20090109
  Serious: Yes (Life-Threatening, Other)
  Sender: FDA-Public Use
  Company Number: None

PATIENT
  Age: 40 Year
  Sex: Female
  Weight: 61.2356 kg

DRUGS (2)
  1. BOTOX [Suspect]
     Indication: SKIN WRINKLING
     Dates: start: 20071221, end: 20080329
  2. BOTOX [Suspect]
     Indication: SKIN WRINKLING
     Dates: start: 20080813, end: 20080914

REACTIONS (9)
  - ANAEMIA [None]
  - ASTHMA [None]
  - BRONCHITIS [None]
  - DRUG HYPERSENSITIVITY [None]
  - DRUG INEFFECTIVE [None]
  - HAEMORRHAGE [None]
  - HEADACHE [None]
  - HYPERHIDROSIS [None]
  - SPEECH DISORDER [None]
